FAERS Safety Report 14267753 (Version 1)
Quarter: 2017Q4

REPORT INFORMATION
  Report Type: Spontaneous
  Country: US (occurrence: US)
  Receive Date: 20171211
  Receipt Date: 20171211
  Transmission Date: 20180321
  Serious: Yes (Other)
  Sender: FDA-Public Use
  Company Number: None

PATIENT
  Age: 12 Year
  Sex: Female

DRUGS (1)
  1. SKLICE [Suspect]
     Active Substance: IVERMECTIN
     Indication: LICE INFESTATION
     Route: 061
     Dates: start: 20171210, end: 20171210

REACTIONS (2)
  - Vomiting projectile [None]
  - Middle insomnia [None]

NARRATIVE: CASE EVENT DATE: 20171210
